FAERS Safety Report 4951452-X (Version None)
Quarter: 2006Q1

REPORT INFORMATION
  Report Type: 
  Country: None (occurrence: None)
  Receive Date: 20060323
  Receipt Date: 20060220
  Transmission Date: 20060701
  Serious: No
  Sender: FDA-Public Use
  Company Number: US-GLAXOSMITHKLINE-A0594418A

PATIENT
  Sex: Female

DRUGS (2)
  1. AVANDARYL [Suspect]
     Route: 048
  2. UNKNOWN [Concomitant]

REACTIONS (1)
  - OEDEMA PERIPHERAL [None]
